FAERS Safety Report 7030582-5 (Version None)
Quarter: 2010Q4

REPORT INFORMATION
  Report Type: 
  Country: None (occurrence: None)
  Receive Date: 20101006
  Receipt Date: 20100927
  Transmission Date: 20110411
  Serious: Yes (Other)
  Sender: FDA-Public Use
  Company Number: CN-ROCHE-729350

PATIENT
  Sex: Female
  Weight: 63 kg

DRUGS (6)
  1. HERCEPTIN [Suspect]
     Indication: BREAST CANCER METASTATIC
     Route: 041
     Dates: start: 20091001, end: 20100628
  2. HERCEPTIN [Suspect]
     Route: 041
     Dates: start: 20100628, end: 20100907
  3. XELODA [Suspect]
     Indication: BREAST CANCER METASTATIC
     Dosage: 12 CYCLES WAS USED
     Route: 048
     Dates: start: 20080101, end: 20091001
  4. XELODA [Suspect]
     Route: 048
     Dates: start: 20100628
  5. UNSPECIFIED DRUG [Concomitant]
     Indication: BREAST CANCER METASTATIC
     Dosage: 12 CYCLES WAS USED
     Dates: start: 20080101, end: 20091001
  6. PACLITAXEL [Concomitant]
     Indication: BREAST CANCER METASTATIC
     Route: 041
     Dates: start: 20091001, end: 20100628

REACTIONS (7)
  - CHILLS [None]
  - DISEASE PROGRESSION [None]
  - DIZZINESS [None]
  - DRUG INEFFECTIVE [None]
  - PYREXIA [None]
  - SYNCOPE [None]
  - WHITE BLOOD CELL COUNT INCREASED [None]
